FAERS Safety Report 6924215-3 (Version None)
Quarter: 2010Q3

REPORT INFORMATION
  Report Type: 
  Country: None (occurrence: None)
  Receive Date: 20100812
  Receipt Date: 20100812
  Transmission Date: 20110219
  Serious: Yes (Hospitalization)
  Sender: FDA-Public Use
  Company Number: None

PATIENT
  Age: 72 Year
  Sex: Male
  Weight: 110.7 kg

DRUGS (3)
  1. OXLIPLATIN 100MG VIAL SANOFI-AVENTIA [Suspect]
     Indication: BILIARY CANCER METASTATIC
     Dosage: 48MG/M2 Q 2 WEEKS
     Dates: start: 20090202, end: 20100618
  2. SORAFENIB 200 MG TAB BAYER [Suspect]
     Indication: BILIARY CANCER METASTATIC
     Dosage: 200 MG QOD ORAL
     Route: 048
     Dates: start: 20090202, end: 20100620
  3. CEPECITABINE [Concomitant]

REACTIONS (5)
  - DIALYSIS [None]
  - HYPERKALAEMIA [None]
  - HYPERMAGNESAEMIA [None]
  - HYPONATRAEMIA [None]
  - RENAL FAILURE ACUTE [None]
